FAERS Safety Report 6851890-4 (Version None)
Quarter: 2010Q3

REPORT INFORMATION
  Report Type: 
  Country: None (occurrence: None)
  Receive Date: 20100717
  Receipt Date: 20071102
  Transmission Date: 20110219
  Serious: No
  Sender: FDA-Public Use
  Company Number: US-PFIZER INC-2007092424

PATIENT
  Sex: Female
  Weight: 80.9 kg

DRUGS (5)
  1. CHANTIX [Suspect]
     Indication: SMOKING CESSATION THERAPY
     Route: 048
     Dates: start: 20070910
  2. ANTIHYPERTENSIVES [Concomitant]
     Route: 048
  3. OTHER HYPNOTICS AND SEDATIVES [Concomitant]
     Route: 048
  4. FOSAMAX [Concomitant]
     Route: 048
     Dates: start: 19870101
  5. ZOCOR [Concomitant]
     Route: 048

REACTIONS (3)
  - ABDOMINAL DISCOMFORT [None]
  - FATIGUE [None]
  - NAUSEA [None]
